FAERS Safety Report 7548493-5 (Version None)
Quarter: 2011Q2

REPORT INFORMATION
  Report Type: 
  Country: None (occurrence: None)
  Receive Date: 20110615
  Receipt Date: 20110307
  Transmission Date: 20111010
  Serious: Yes (Other)
  Sender: FDA-Public Use
  Company Number: DE-BAYER-2010-005337

PATIENT
  Age: 45 Year
  Sex: Female
  Weight: 110 kg

DRUGS (3)
  1. BETASERON [Suspect]
     Indication: MULTIPLE SCLEROSIS
     Dosage: UNK UNK, QOD
     Dates: start: 20050101
  2. ENALAPRIL PLUS [Concomitant]
     Dosage: UNK
  3. NEBIVOLOL HCL [Concomitant]
     Dosage: 2.5 MG, QD

REACTIONS (4)
  - PAIN [None]
  - SERUM FERRITIN INCREASED [None]
  - HEPATOMEGALY [None]
  - TRANSAMINASES INCREASED [None]
